FAERS Safety Report 18891691 (Version 1)
Quarter: 2021Q1

REPORT INFORMATION
  Report Type: Spontaneous
  Country: US (occurrence: US)
  Receive Date: 20210215
  Receipt Date: 20210215
  Transmission Date: 20210420
  Serious: No
  Sender: FDA-Public Use
  Company Number: US-DRREDDYS-USA/USA/21/0131490

PATIENT
  Sex: Male

DRUGS (1)
  1. OMEPRAZOLE DELAYED RELEASE CAPSULES 20 MG [Suspect]
     Active Substance: OMEPRAZOLE
     Indication: PRODUCT USED FOR UNKNOWN INDICATION
     Dosage: A CAPSULE ONE HOUR BEFORE BREAKFAST AND ONE HOUR BEFORE DINNER
     Route: 048

REACTIONS (3)
  - Dizziness [Unknown]
  - Product use issue [Unknown]
  - Incorrect dose administered [Unknown]
